FAERS Safety Report 18990853 (Version 2)
Quarter: 2021Q1

REPORT INFORMATION
  Report Type: Spontaneous
  Country: FR (occurrence: FR)
  Receive Date: 20210310
  Receipt Date: 20210323
  Transmission Date: 20210420
  Serious: Yes (Hospitalization, Other)
  Sender: FDA-Public Use
  Company Number: FR-AMGEN-FRASP2021034130

PATIENT
  Age: 74 Year
  Sex: Female

DRUGS (6)
  1. ATEZOLIZUMAB. [Suspect]
     Active Substance: ATEZOLIZUMAB
     Indication: NON-SMALL CELL LUNG CANCER
     Dosage: 1200 MILLIGRAM, 7 CYCLES
     Route: 042
     Dates: start: 20200713
  2. PEMETREXED. [Concomitant]
     Active Substance: PEMETREXED
     Indication: NON-SMALL CELL LUNG CANCER
     Dosage: 700 MILLIGRAM CYCLE 1 TO 5
     Route: 042
     Dates: start: 20200713, end: 20201015
  3. BEVACIZUMAB. [Suspect]
     Active Substance: BEVACIZUMAB
     Indication: NON-SMALL CELL LUNG CANCER
     Dosage: 15 MILLIGRAM/KILOGRAM 7 CYCLE
     Route: 042
     Dates: start: 20200713
  4. CARBOPLATIN. [Concomitant]
     Active Substance: CARBOPLATIN
     Dosage: 410 MILLIGRAM, QD ONE CYCLE
     Route: 042
     Dates: start: 20200916, end: 20200916
  5. PEMETREXED. [Concomitant]
     Active Substance: PEMETREXED
     Dosage: 525 MILLIGRAM CYCLE 6 TO 8 (2 CYCLES)
     Route: 042
     Dates: start: 20201105, end: 20201126
  6. CARBOPLATIN. [Concomitant]
     Active Substance: CARBOPLATIN
     Indication: NON-SMALL CELL LUNG CANCER
     Dosage: 420 MILLIGRAM 3CYCLES
     Route: 042
     Dates: start: 20200713, end: 20200825

REACTIONS (3)
  - Ischaemic stroke [Not Recovered/Not Resolved]
  - Hypertension [Recovering/Resolving]
  - COVID-19 [Recovering/Resolving]

NARRATIVE: CASE EVENT DATE: 20201214
